FAERS Safety Report 6370708-X (Version None)
Quarter: 2009Q3

REPORT INFORMATION
  Report Type: 
  Country: None (occurrence: None)
  Receive Date: 20090923
  Receipt Date: 20071214
  Transmission Date: 20100115
  Serious: No
  Sender: FDA-Public Use
  Company Number: US-ASTRAZENECA-2006UW25181

PATIENT
  Age: 16019 Day
  Sex: Male
  Weight: 71.2 kg

DRUGS (5)
  1. SEROQUEL [Suspect]
     Indication: DEPRESSION
     Route: 048
     Dates: start: 19970101, end: 19980101
  2. ZYPREXA [Concomitant]
  3. DILANTIN [Concomitant]
     Dates: start: 19990120
  4. KLONOPIN [Concomitant]
     Dates: start: 19990120
  5. TYLENOL (CAPLET) [Concomitant]
     Dosage: THREE TIMES A DAY
     Dates: start: 20000822

REACTIONS (4)
  - DIABETES MELLITUS [None]
  - MALAISE [None]
  - METABOLIC SYNDROME [None]
  - TYPE 2 DIABETES MELLITUS [None]
